FAERS Safety Report 11059170 (Version 4)
Quarter: 2015Q2

REPORT INFORMATION
  Report Type: Spontaneous
  Country: JP (occurrence: JP)
  Receive Date: 20150423
  Receipt Date: 20150610
  Transmission Date: 20150821
  Serious: Yes (Other)
  Sender: FDA-Public Use
  Company Number: JP-KERYX BIOPHARMACEUTICALS, INC.-2015JP000885

PATIENT

DRUGS (12)
  1. RIONA [Suspect]
     Active Substance: FERRIC CITRATE ANHYDROUS
     Indication: HYPERPHOSPHATAEMIA
     Dosage: 500 MG, TID
     Route: 048
     Dates: start: 20140514, end: 20140808
  2. WARFARIN POTASSIUM [Concomitant]
     Active Substance: WARFARIN POTASSIUM
     Indication: DISSEMINATED INTRAVASCULAR COAGULATION
     Dosage: 2.5 MG, UNK
     Route: 048
     Dates: start: 201304
  3. EPL                                /07733501/ [Concomitant]
     Indication: HEPATIC FUNCTION ABNORMAL
     Dosage: 500 MG, UNK
     Route: 048
     Dates: start: 201307
  4. NESP [Concomitant]
     Active Substance: DARBEPOETIN ALFA
     Indication: NEPHROGENIC ANAEMIA
     Dosage: 40 ?G/KG, UNK
     Route: 042
     Dates: start: 20140428, end: 20140525
  5. CALTAN [Concomitant]
     Active Substance: CALCIUM CARBONATE
     Indication: HYPERPHOSPHATAEMIA
     Dosage: 1000 MG, UNK
     Route: 048
     Dates: start: 201304
  6. TAKEPRON [Concomitant]
     Active Substance: LANSOPRAZOLE
     Indication: GASTROOESOPHAGEAL REFLUX DISEASE
     Dosage: 15 MG, UNK
     Route: 048
     Dates: start: 201304
  7. RIBALL [Concomitant]
     Active Substance: ALLOPURINOL
     Indication: HYPERURICAEMIA
     Dosage: 100 MG, UNK
     Route: 048
     Dates: start: 201304
  8. NESP [Concomitant]
     Active Substance: DARBEPOETIN ALFA
     Dosage: 60 ?G/KG, UNK
     Route: 042
     Dates: start: 20140711, end: 20140804
  9. MARZULENE-S [Concomitant]
     Active Substance: SODIUM GUALENATE
     Indication: GASTRITIS
     Dosage: .5 MG, UNK
     Route: 048
     Dates: start: 201304
  10. LAC-B [Concomitant]
     Active Substance: BIFIDOBACTERIUM SPP.
     Indication: ENTEROCOLITIS
     Dosage: 1.0 G, UNK
     Route: 048
     Dates: start: 201306
  11. VITAMILO ALFA [Concomitant]
     Indication: HYPERPARATHYROIDISM SECONDARY
     Dosage: 0.25 ?G/KG, UNK
     Route: 048
     Dates: start: 201310
  12. NESP [Concomitant]
     Active Substance: DARBEPOETIN ALFA
     Dosage: 80 ?G/KG, UNK
     Route: 042
     Dates: start: 20140528, end: 20140707

REACTIONS (1)
  - Hepatic function abnormal [Recovered/Resolved]

NARRATIVE: CASE EVENT DATE: 20140707
